FAERS Safety Report 9231009 (Version 2)
Quarter: 2013Q2

REPORT INFORMATION
  Report Type: Spontaneous
  Country: US (occurrence: US)
  Receive Date: 20130415
  Receipt Date: 20130516
  Transmission Date: 20140414
  Serious: Yes (Other)
  Sender: FDA-Public Use
  Company Number: US-JNJFOC-20130402996

PATIENT
  Age: 43 Year
  Sex: Female
  Weight: 61.24 kg

DRUGS (7)
  1. REMICADE [Suspect]
     Indication: COLITIS ULCERATIVE
     Dosage: 3RD INFUSION
     Route: 042
     Dates: start: 201302
  2. REMICADE [Suspect]
     Indication: COLITIS ULCERATIVE
     Dosage: 4TH INFUSION
     Route: 042
     Dates: start: 20130221
  3. REMICADE [Suspect]
     Indication: COLITIS ULCERATIVE
     Route: 042
     Dates: start: 20121203
  4. CALCIUM MAGNESIUM SUPPLEMENT [Suspect]
     Indication: MUSCLE SPASMS
     Route: 048
     Dates: start: 201303, end: 201303
  5. ASACOL [Concomitant]
     Indication: COLITIS ULCERATIVE
     Dosage: 800MG TABLETS (4G/DAY)
     Route: 048
     Dates: start: 1995
  6. CENTRUM NOS [Concomitant]
     Route: 065
  7. CALTRATE [Concomitant]
     Route: 065

REACTIONS (8)
  - Psoriasis [Not Recovered/Not Resolved]
  - Drug hypersensitivity [Not Recovered/Not Resolved]
  - Visual impairment [Not Recovered/Not Resolved]
  - Hepatic enzyme increased [Unknown]
  - Muscle spasms [Not Recovered/Not Resolved]
  - Colitis [Recovered/Resolved]
  - Incorrect dose administered [Recovered/Resolved]
  - Rosacea [Not Recovered/Not Resolved]
